FAERS Safety Report 9207134 (Version 3)
Quarter: 2013Q2

REPORT INFORMATION
  Report Type: Spontaneous
  Country: NZ (occurrence: NZ)
  Receive Date: 20130403
  Receipt Date: 20130419
  Transmission Date: 20140414
  Serious: Yes (Other)
  Sender: FDA-Public Use
  Company Number: NZ-VERTEX PHARMACEUTICALS INC.-2013-004388

PATIENT
  Age: 55 Year
  Sex: Female
  Weight: 52 kg

DRUGS (6)
  1. INCIVO [Suspect]
     Indication: CHRONIC HEPATITIS C
     Dosage: FREQUENCY: EVERY 8 HOURS
     Route: 048
     Dates: start: 20130125
  2. PEGYLATED INTERFERON [Suspect]
     Indication: PRODUCT USED FOR UNKNOWN INDICATION
     Dosage: UNK, QW
     Route: 058
  3. RIBAVIRIN [Concomitant]
     Indication: PRODUCT USED FOR UNKNOWN INDICATION
     Dosage: DOSAGE FORM: UNSPECIFIED
     Route: 048
     Dates: start: 20130222
  4. RIBAVIRIN [Concomitant]
     Dosage: DOSAGE FORM: UNSPECIFIED
     Route: 048
  5. CALCIFEROL [Concomitant]
     Indication: PRODUCT USED FOR UNKNOWN INDICATION
     Dosage: CALCIFEROL STRONG
     Route: 048
  6. METOPROLOL [Concomitant]
     Indication: PRODUCT USED FOR UNKNOWN INDICATION
     Dosage: DOSAGE: HALF A TABLET DAILY

REACTIONS (3)
  - Eye haemorrhage [Recovered/Resolved]
  - Optic neuropathy [Recovered/Resolved]
  - Retinal exudates [Recovered/Resolved]
